FAERS Safety Report 8688346 (Version 3)
Quarter: 2012Q4

REPORT INFORMATION
  Report Type: 
  Country: US (occurrence: US)
  Receive Date: 20120727
  Receipt Date: 20120917
  Transmission Date: 20130627
  Serious: Yes (Other)
  Sender: FDA-Public Use
  Company Number: US-BAYER-2012-075075

PATIENT
  Age: 34 Year
  Sex: Female
  Weight: 58.5 kg

DRUGS (3)
  1. MIRENA [Suspect]
     Indication: CONTRACEPTION
     Dosage: 20 mcg/24hr, CONT
     Route: 015
     Dates: start: 20120514, end: 20120719
  2. MIRENA [Suspect]
     Indication: CONTRACEPTION
     Dosage: 20 mcg/24hr, CONT
     Route: 015
     Dates: start: 20120719
  3. ENDOCICIN [Concomitant]

REACTIONS (3)
  - Uterine spasm [None]
  - Device expulsion [None]
  - Vaginal haemorrhage [None]
